FAERS Safety Report 4368270-6 (Version None)
Quarter: 2004Q2

REPORT INFORMATION
  Report Type: 
  Country: None (occurrence: None)
  Receive Date: 20040527
  Receipt Date: 20040512
  Transmission Date: 20050107
  Serious: Yes (Hospitalization)
  Sender: FDA-Public Use
  Company Number: 28488

PATIENT
  Age: 72 Year
  Sex: Female

DRUGS (3)
  1. IOPIDINE [Suspect]
     Indication: GLAUCOMA
     Dosage: OPHT
     Route: 047
     Dates: start: 20040311, end: 20040421
  2. SIMVASTATIN [Concomitant]
  3. LATANOPROST [Concomitant]

REACTIONS (2)
  - DIABETES MELLITUS INADEQUATE CONTROL [None]
  - SOMNOLENCE [None]
